FAERS Safety Report 9624429 (Version 1)
Quarter: 2013Q4

REPORT INFORMATION
  Report Type: Spontaneous
  Country: AU (occurrence: AU)
  Receive Date: 20131015
  Receipt Date: 20131015
  Transmission Date: 20140711
  Serious: Yes (Disabling)
  Sender: FDA-Public Use
  Company Number: AU-B.I. PHARMACEUTICALS,INC./RIDGEFIELD-2013-BI-31956AU

PATIENT
  Age: 85 Year
  Sex: Male
  Weight: 98 kg

DRUGS (6)
  1. PRADAXA [Suspect]
     Indication: ATRIAL FIBRILLATION
     Dosage: 220 MG
     Dates: start: 20111007
  2. ARICEPT [Concomitant]
     Indication: DEMENTIA
  3. ATORVASTATIN [Concomitant]
     Indication: CEREBROVASCULAR ACCIDENT
  4. ATORVASTATIN [Concomitant]
     Indication: TRANSIENT ISCHAEMIC ATTACK
  5. RAMIPRIL [Concomitant]
     Indication: CEREBROVASCULAR ACCIDENT
  6. RAMIPRIL [Concomitant]
     Indication: TRANSIENT ISCHAEMIC ATTACK

REACTIONS (3)
  - Visual field defect [Unknown]
  - Miosis [Unknown]
  - Cataract [Unknown]
